FAERS Safety Report 19998824 (Version 1)
Quarter: 2021Q4

REPORT INFORMATION
  Report Type: Spontaneous
  Country: ES (occurrence: ES)
  Receive Date: 20211026
  Receipt Date: 20211026
  Transmission Date: 20220303
  Serious: Yes (Other)
  Sender: FDA-Public Use
  Company Number: ES-PFIZER INC-202101368204

PATIENT
  Age: 52 Year
  Sex: Female

DRUGS (1)
  1. CABERGOLINE [Suspect]
     Active Substance: CABERGOLINE
     Indication: Prolactin-producing pituitary tumour
     Dosage: UNK , WEEKLY (UP TO 3 MG)

REACTIONS (2)
  - Raynaud^s phenomenon [Recovered/Resolved]
  - Therapeutic product effect incomplete [Unknown]
